FAERS Safety Report 5959225-6 (Version None)
Quarter: 2008Q4

REPORT INFORMATION
  Report Type: 
  Country: None (occurrence: None)
  Receive Date: 20081120
  Receipt Date: 20080827
  Transmission Date: 20090506
  Serious: No
  Sender: FDA-Public Use
  Company Number: A0744703A

PATIENT
  Age: 37 Year
  Sex: Female

DRUGS (3)
  1. WELLBUTRIN SR [Suspect]
     Indication: POSTPARTUM DEPRESSION
     Dosage: 150MG TWICE PER DAY
     Route: 048
     Dates: start: 20080717, end: 20080817
  2. MOTRIN [Concomitant]
  3. EXTRA STRENGTH TYLENOL [Concomitant]

REACTIONS (2)
  - HEADACHE [None]
  - NAUSEA [None]
